FAERS Safety Report 15869308 (Version 2)
Quarter: 2019Q1

REPORT INFORMATION
  Report Type: Spontaneous
  Country: US (occurrence: US)
  Receive Date: 20190125
  Receipt Date: 20190219
  Transmission Date: 20190417
  Serious: No
  Sender: FDA-Public Use
  Company Number: PHHY2019US017807

PATIENT
  Sex: Female

DRUGS (1)
  1. SYSTANE ULTRA [Suspect]
     Active Substance: POLYETHYLENE GLYCOL 400\PROPYLENE GLYCOL
     Indication: PRODUCT USED FOR UNKNOWN INDICATION
     Dosage: UNK
     Route: 047

REACTIONS (3)
  - Eye irritation [Recovered/Resolved]
  - Product dropper issue [Unknown]
  - Vision blurred [Recovered/Resolved]
